FAERS Safety Report 17371254 (Version 2)
Quarter: 2020Q4

REPORT INFORMATION
  Report Type: Report from Study
  Country: GB (occurrence: GB)
  Receive Date: 20200205
  Receipt Date: 20201208
  Transmission Date: 20210113
  Serious: Yes (Death, Hospitalization, Other)
  Sender: FDA-Public Use
  Company Number: GB-PFIZER INC-2018216203

PATIENT
  Age: 44 Year
  Sex: Female

DRUGS (58)
  1. DOCETAXEL. [Suspect]
     Active Substance: DOCETAXEL
     Indication: BREAST CANCER METASTATIC
     Dosage: 120 MG, EVERY 3 WEEKS, (LAST DOSE RECEIVED ON 21/MAR/2017 6 CYCLES)
     Route: 042
     Dates: start: 20161117
  2. PERTUZUMAB. [Suspect]
     Active Substance: PERTUZUMAB
     Dosage: 420 MG, EVERY 3 WEEKS
     Route: 042
     Dates: start: 20161117, end: 20181122
  3. DEXAMETHASONE. [Concomitant]
     Active Substance: DEXAMETHASONE
     Dosage: 0.25 UG
     Route: 048
     Dates: start: 20180621, end: 20190326
  4. OXYCODONE [Concomitant]
     Active Substance: OXYCODONE
     Dosage: 180 MG, 1X/DAY
     Route: 048
     Dates: start: 20171130, end: 20190326
  5. DALTEPARIN [Concomitant]
     Active Substance: DALTEPARIN
     Indication: DEEP VEIN THROMBOSIS
     Dosage: 18 IU, UNK
     Route: 058
     Dates: start: 20170418, end: 20180510
  6. BISACODYL. [Concomitant]
     Active Substance: BISACODYL
     Indication: CONSTIPATION
     Dosage: UNK
     Route: 048
     Dates: start: 20170109, end: 20190326
  7. MACROGOL [Concomitant]
     Active Substance: POLYETHYLENE GLYCOLS
     Indication: CONSTIPATION
     Dosage: 1 DF, 1X/DAY
     Route: 048
     Dates: start: 20170922, end: 20190326
  8. CANDESTAN [Concomitant]
     Indication: CANDIDA INFECTION
     Dosage: 100 MG
     Route: 067
     Dates: start: 20180419, end: 20180419
  9. PERTUZUMAB. [Suspect]
     Active Substance: PERTUZUMAB
     Indication: BREAST CANCER METASTATIC
     Dosage: 840 MG, PLANNED NUMBER OF CYCLES COMPLETED
     Route: 042
     Dates: start: 20161020, end: 20161020
  10. HYDROCORTISONE. [Concomitant]
     Active Substance: HYDROCORTISONE
     Dosage: 100 MG, UNK
     Route: 042
     Dates: start: 20161117, end: 20161117
  11. DEXAMETHASONE. [Concomitant]
     Active Substance: DEXAMETHASONE
     Dosage: 0.5 MG
     Route: 048
     Dates: start: 20180308, end: 20180419
  12. METOCLOPRAMIDE. [Concomitant]
     Active Substance: METOCLOPRAMIDE
     Dosage: 10 MG, UNK
     Route: 048
     Dates: start: 20170510, end: 20190326
  13. ONDANSETRON [Concomitant]
     Active Substance: ONDANSETRON
     Indication: NAUSEA
     Dosage: 4 MG, UNK
     Route: 048
     Dates: start: 20170510, end: 20190326
  14. GABAPENTIN. [Concomitant]
     Active Substance: GABAPENTIN
     Indication: PAIN
     Dosage: 300 MG, 3X/DAY
     Route: 048
     Dates: start: 20171116, end: 20180621
  15. DEXAMETHASONE. [Concomitant]
     Active Substance: DEXAMETHASONE
     Dosage: 2 MG, 1X/DAY
     Route: 048
     Dates: start: 20170308, end: 20170831
  16. DEXAMETHASONE. [Concomitant]
     Active Substance: DEXAMETHASONE
     Dosage: 6 MG
     Route: 048
     Dates: start: 20181205, end: 20181205
  17. ORAMORPH SR SUSTAINED RELEASE [Concomitant]
     Active Substance: MORPHINE SULFATE
     Indication: PAIN
     Dosage: 5 MG, UNK
     Route: 048
     Dates: start: 20180830, end: 20190326
  18. BUPRENORPHINE. [Concomitant]
     Active Substance: BUPRENORPHINE
     Indication: PAIN
     Dosage: UNK UNK, WEEKLY
     Route: 062
     Dates: start: 20181023, end: 20181212
  19. DICLOFENAC [Concomitant]
     Active Substance: DICLOFENAC
     Dosage: 1 DROP
     Route: 061
     Dates: start: 20181023, end: 20190326
  20. LEVETIRACETAM. [Concomitant]
     Active Substance: LEVETIRACETAM
     Dosage: 500 MG, 2X/DAY
     Route: 048
     Dates: start: 20190103, end: 20190326
  21. CANESTEN [Concomitant]
     Active Substance: CLOTRIMAZOLE
     Dosage: 100 MG, UNK
     Dates: start: 20180419, end: 20180419
  22. FRUSEMIDE [FUROSEMIDE] [Concomitant]
     Active Substance: FUROSEMIDE
     Dosage: UNK
     Route: 048
     Dates: start: 20170510, end: 20190326
  23. LAXIDO [Concomitant]
     Active Substance: POLYETHYLENE GLYCOL 3350\POTASSIUM CHLORIDE\SODIUM BICARBONATE\SODIUM CHLORIDE
     Indication: CONSTIPATION
     Dosage: 2 SACHET
     Route: 048
     Dates: start: 20171009, end: 20190326
  24. LANSOPRAZOLE. [Concomitant]
     Active Substance: LANSOPRAZOLE
     Dosage: 30 MG, 1X/DAY
     Route: 048
     Dates: start: 20190326
  25. DEXAMETHASONE. [Concomitant]
     Active Substance: DEXAMETHASONE
     Indication: SEIZURE
     Dosage: 6 MG, 1X/DAY
     Route: 048
     Dates: start: 20170125
  26. DEXAMETHASONE. [Concomitant]
     Active Substance: DEXAMETHASONE
     Dosage: 8 MG, 1X/DAY
     Route: 048
     Dates: start: 20181208, end: 20181213
  27. CHLORPHENAMINE [Concomitant]
     Active Substance: CHLORPHENIRAMINE MALEATE
     Dosage: 10 MG, UNK
     Route: 042
     Dates: start: 20161117, end: 20161117
  28. TINZAPARIN [Concomitant]
     Active Substance: TINZAPARIN
     Dosage: 4500 UNIT
     Route: 058
     Dates: start: 20181205, end: 20181212
  29. FRUSEMIDE [FUROSEMIDE] [Concomitant]
     Active Substance: FUROSEMIDE
     Indication: OEDEMA PERIPHERAL
     Dosage: 40 MG, UNK
     Route: 048
     Dates: start: 20170308, end: 20190326
  30. LACTULOSE. [Concomitant]
     Active Substance: LACTULOSE
     Indication: CONSTIPATION
     Dosage: 10 UNK, UNK
     Route: 048
     Dates: start: 20180830, end: 20190326
  31. FLUCLOXACILLIN [Concomitant]
     Active Substance: FLUCLOXACILLIN
     Dosage: 500 MG, 4X/DAY
     Route: 048
     Dates: start: 20170406, end: 20170413
  32. TRASTUZUMAB. [Suspect]
     Active Substance: TRASTUZUMAB
     Indication: BREAST CANCER METASTATIC
     Dosage: 798 MG, PLANNED NUMBER OF CYCLES COMPLETED
     Route: 042
     Dates: start: 20161020, end: 20161020
  33. DEXAMETHASONE. [Concomitant]
     Active Substance: DEXAMETHASONE
     Indication: VISUAL IMPAIRMENT
     Dosage: 8 MG, 1X/DAY
     Route: 048
     Dates: start: 20161116, end: 20161119
  34. DEXAMETHASONE. [Concomitant]
     Active Substance: DEXAMETHASONE
     Dosage: 4 MG, 1X/DAY
     Route: 048
     Dates: start: 20170126, end: 20170308
  35. DEXAMETHASONE. [Concomitant]
     Active Substance: DEXAMETHASONE
     Dosage: 8 MG, 2X/DAY
     Route: 048
     Dates: start: 20181206, end: 20181207
  36. METOCLOPRAMIDE. [Concomitant]
     Active Substance: METOCLOPRAMIDE
     Dosage: UNK
     Route: 042
     Dates: start: 20161117, end: 20161117
  37. MOVICOL [Concomitant]
     Active Substance: POLYETHYLENE GLYCOL 3350\POTASSIUM CHLORIDE\SODIUM BICARBONATE\SODIUM CHLORIDE
     Indication: CONSTIPATION
     Dosage: 1 POWDER SACHET
     Route: 048
     Dates: start: 20190326
  38. RAMIPRIL. [Concomitant]
     Active Substance: RAMIPRIL
     Dosage: 1.25 MG, UNK
     Route: 048
     Dates: start: 20170608, end: 20190326
  39. NAPROXEN. [Concomitant]
     Active Substance: NAPROXEN
     Dosage: 1000 MG, 1X/DAY
     Route: 048
     Dates: start: 20170922, end: 20190326
  40. LEVETIRACETAM. [Concomitant]
     Active Substance: LEVETIRACETAM
     Indication: SEIZURE
     Dosage: 250 MG, 1X/DAY
     Route: 048
     Dates: start: 20181213, end: 20190103
  41. TRASTUZUMAB. [Suspect]
     Active Substance: TRASTUZUMAB
     Dosage: 600 MG, EVERY 3 WEEKS
     Route: 042
     Dates: start: 20161117, end: 20181122
  42. FILGRASTIM [Concomitant]
     Active Substance: FILGRASTIM
     Dosage: 480 UG, DAYS 2-6 POST CHEMO
     Route: 058
     Dates: start: 20161118, end: 20161121
  43. DEXAMETHASONE. [Concomitant]
     Active Substance: DEXAMETHASONE
     Dosage: 0.25 MG
     Route: 048
     Dates: start: 20180419, end: 20180510
  44. DEXAMETHASONE. [Concomitant]
     Active Substance: DEXAMETHASONE
     Dosage: 12 MG, 1X/DAY
     Route: 048
     Dates: start: 20181214, end: 20190124
  45. CO-AMOXICLAV [Concomitant]
     Active Substance: AMOXICILLIN\CLAVULANATE POTASSIUM
     Indication: LOWER RESPIRATORY TRACT INFECTION
     Dosage: 1500 MG, 1X/DAY
     Route: 048
     Dates: start: 20161207
  46. IBUPROFEN. [Concomitant]
     Active Substance: IBUPROFEN
     Indication: PAIN
     Dosage: 200 MG, 3X/DAY
     Route: 048
     Dates: start: 20180308, end: 20180621
  47. OXYCODONE [Concomitant]
     Active Substance: OXYCODONE
     Indication: BACK PAIN
     Dosage: 40 MG, 1X/DAY
     Route: 048
     Dates: start: 20171012, end: 20171101
  48. OXYCODONE [Concomitant]
     Active Substance: OXYCODONE
     Dosage: 40 MG, 1X/DAY
     Route: 048
     Dates: start: 20171101, end: 20171130
  49. FLUCONAZOLE. [Concomitant]
     Active Substance: FLUCONAZOLE
     Dosage: 50 MG, 1X/DAY
     Route: 048
     Dates: start: 20161207, end: 20161214
  50. HYDROCORTISONE. [Concomitant]
     Active Substance: HYDROCORTISONE
     Dosage: 50 MG, UNK
     Route: 042
     Dates: start: 20170122, end: 20170122
  51. DEXAMETHASONE. [Concomitant]
     Active Substance: DEXAMETHASONE
     Dosage: 1 MG, 1X/DAY
     Route: 048
     Dates: start: 20170831, end: 20180308
  52. DEXAMETHASONE. [Concomitant]
     Active Substance: DEXAMETHASONE
     Dosage: 14 MG
     Route: 048
     Dates: start: 20190124, end: 20190326
  53. CO-AMOXICLAV [Concomitant]
     Active Substance: AMOXICILLIN\CLAVULANATE POTASSIUM
     Dosage: 1500 MG, 1X/DAY
     Route: 048
     Dates: start: 20170125, end: 20170130
  54. CO-AMOXICLAV [Concomitant]
     Active Substance: AMOXICILLIN\CLAVULANATE POTASSIUM
     Dosage: 3.6 G, 1X/DAY
     Route: 042
     Dates: start: 20170122, end: 20170124
  55. BUPRENORPHINE. [Concomitant]
     Active Substance: BUPRENORPHINE
     Dosage: 10 UG, WEEKLY
     Route: 062
     Dates: start: 20181212, end: 20190326
  56. MORPHINE SULPHATE [Concomitant]
     Active Substance: MORPHINE SULFATE
     Dosage: 10 MG, UNK
     Route: 048
     Dates: start: 20170922, end: 20190326
  57. OXYCONTIN [Concomitant]
     Active Substance: OXYCODONE HYDROCHLORIDE
     Indication: PAIN
     Dosage: UNK UNK, 2X/DAY
     Route: 048
     Dates: start: 20171116, end: 20180621
  58. AMOXICILLIN. [Concomitant]
     Active Substance: AMOXICILLIN
     Indication: RHINITIS
     Dosage: 500 MG
     Route: 048
     Dates: start: 20181205, end: 20181205

REACTIONS (8)
  - Back pain [Not Recovered/Not Resolved]
  - Joint swelling [Not Recovered/Not Resolved]
  - Spinal compression fracture [Recovered/Resolved]
  - Ejection fraction decreased [Recovered/Resolved]
  - Peripheral swelling [Not Recovered/Not Resolved]
  - Constipation [Recovering/Resolving]
  - Deep vein thrombosis [Recovered/Resolved]
  - Swelling face [Recovered/Resolved]

NARRATIVE: CASE EVENT DATE: 20170122
